FAERS Safety Report 24167486 (Version 1)
Quarter: 2024Q3

REPORT INFORMATION
  Report Type: Spontaneous
  Country: US (occurrence: None)
  Receive Date: 20240801
  Receipt Date: 20240801
  Transmission Date: 20241016
  Serious: Yes (Death)
  Sender: Public
  Company Number: None

PATIENT
  Sex: Female

DRUGS (4)
  1. MARGENZA [Suspect]
     Active Substance: MARGETUXIMAB-CMKB
     Indication: Breast cancer female
     Route: 042
     Dates: start: 202401
  2. MARGENZA [Suspect]
     Active Substance: MARGETUXIMAB-CMKB
     Indication: Bone cancer
  3. MARGENZA [Suspect]
     Active Substance: MARGETUXIMAB-CMKB
     Indication: Metastases to adrenals
  4. NERLYNX [Concomitant]
     Active Substance: NERATINIB

REACTIONS (1)
  - Neoplasm malignant [None]
